FAERS Safety Report 10018623 (Version 1)
Quarter: 2014Q1

REPORT INFORMATION
  Report Type: Spontaneous
  Country: US (occurrence: US)
  Receive Date: 20140318
  Receipt Date: 20140318
  Transmission Date: 20141002
  Serious: Yes (Other)
  Sender: FDA-Public Use
  Company Number: US-WATSON-2014-04857

PATIENT
  Age: 20 Year
  Sex: Female

DRUGS (3)
  1. NORTRIPTYLINE HYDROCHLORIDE (WATSON LABORATORIES) [Suspect]
     Indication: DYSPAREUNIA
     Dosage: 40 MG, DAILY
     Route: 048
  2. NORTRIPTYLINE HYDROCHLORIDE (WATSON LABORATORIES) [Suspect]
     Indication: OFF LABEL USE
     Dosage: 10 MG, DAILY
     Route: 048
  3. IBUPROFEN [Concomitant]
     Indication: PRODUCT USED FOR UNKNOWN INDICATION
     Dosage: UNKNOWN, AS NEEDED
     Route: 065

REACTIONS (4)
  - Drug eruption [Recovered/Resolved]
  - Vulvovaginal mycotic infection [Unknown]
  - Photosensitivity reaction [Unknown]
  - Off label use [Recovered/Resolved]
